FAERS Safety Report 24449299 (Version 1)
Quarter: 2024Q4

REPORT INFORMATION
  Report Type: Spontaneous
  Country: ES (occurrence: ES)
  Receive Date: 20241017
  Receipt Date: 20241017
  Transmission Date: 20250115
  Serious: Yes (Hospitalization)
  Sender: RANBAXY
  Company Number: ES-AEMPS-1561670

PATIENT
  Age: 88 Year
  Sex: Male

DRUGS (4)
  1. CIPROFLOXACIN [Suspect]
     Active Substance: CIPROFLOXACIN
     Indication: Prostatitis
     Dosage: 500 MILLIGRAM, BID EVERY 12 HOURS
     Route: 048
     Dates: start: 20240325, end: 20240425
  2. ERTAPENEM [Suspect]
     Active Substance: ERTAPENEM
     Indication: Urosepsis
     Dosage: 1 GRAM, QD EVERY 24 HOURS
     Route: 040
     Dates: start: 20240508, end: 20240515
  3. AMOXICILLIN\CLAVULANIC ACID [Suspect]
     Active Substance: AMOXICILLIN\CLAVULANIC ACID
     Indication: Intestinal obstruction
     Dosage: UNK
     Route: 040
     Dates: start: 20240429, end: 20240513
  4. FOSFOMYCIN TROMETHAMINE [Suspect]
     Active Substance: FOSFOMYCIN TROMETHAMINE
     Indication: Genitourinary tract infection
     Dosage: 3 GRAM TOTAL 1 SINGLE DOSE
     Route: 048
     Dates: start: 20240516, end: 20240516

REACTIONS (1)
  - Clostridium difficile colitis [Unknown]

NARRATIVE: CASE EVENT DATE: 20240524
